FAERS Safety Report 4492884-6 (Version None)
Quarter: 2004Q4

REPORT INFORMATION
  Report Type: 
  Country: None (occurrence: None)
  Receive Date: 20041102
  Receipt Date: 20041015
  Transmission Date: 20050328
  Serious: Yes (Hospitalization)
  Sender: FDA-Public Use
  Company Number: PHBS2004NO12570

PATIENT
  Age: 26 Year
  Sex: Female

DRUGS (3)
  1. LIORESAL [Suspect]
     Indication: MUSCLE SPASMS
     Dosage: SEE IMAGE
     Route: 037
     Dates: start: 20040401
  2. LIORESAL [Suspect]
     Indication: MUSCLE SPASMS
     Dosage: SEE IMAGE
     Route: 037
     Dates: start: 20041015
  3. CLONAZEPAM [Suspect]

REACTIONS (9)
  - DECREASED APPETITE [None]
  - DEVICE FAILURE [None]
  - DYSKINESIA [None]
  - MUSCLE SPASTICITY [None]
  - PYREXIA [None]
  - RASH GENERALISED [None]
  - RASH PRURITIC [None]
  - RESPIRATORY RATE DECREASED [None]
  - SLEEP DISORDER [None]
